FAERS Safety Report 19575190 (Version 1)
Quarter: 2021Q3

REPORT INFORMATION
  Report Type: Spontaneous
  Country: US (occurrence: US)
  Receive Date: 20210716
  Receipt Date: 20210716
  Transmission Date: 20211014
  Serious: No
  Sender: FDA-Public Use
  Company Number: None

PATIENT
  Age: 61 Year
  Sex: Female
  Weight: 9.9 kg

DRUGS (4)
  1. ALBUTEROL. [Concomitant]
     Active Substance: ALBUTEROL
  2. BECONAISE [Concomitant]
  3. VIT D [Concomitant]
     Active Substance: VITAMIN D NOS
  4. NEUTROGENA AGE SHIELD FACE OIL FREE SUNSCREEN BROAD SPECTRUM SPF 110 [Suspect]
     Active Substance: AVOBENZONE\HOMOSALATE\OCTISALATE\OCTOCRYLENE\OXYBENZONE
     Indication: PROPHYLAXIS AGAINST SOLAR RADIATION
     Route: 061

REACTIONS (5)
  - Hypersensitivity [None]
  - Pruritus [None]
  - Skin swelling [None]
  - Skin disorder [None]
  - Erythema [None]

NARRATIVE: CASE EVENT DATE: 20210622
